FAERS Safety Report 7327926-3 (Version None)
Quarter: 2011Q1

REPORT INFORMATION
  Report Type: 
  Country: None (occurrence: None)
  Receive Date: 20110303
  Receipt Date: 20110223
  Transmission Date: 20110831
  Serious: No
  Sender: FDA-Public Use
  Company Number: DE-JNJFOC-20110203211

PATIENT
  Sex: Male
  Weight: 50 kg

DRUGS (2)
  1. DURAGESIC-100 [Suspect]
     Indication: PAIN
     Dosage: 4 X 100UG
     Route: 062
  2. DURAGESIC-100 [Suspect]
     Dosage: 1X100UG / 1X50UG
     Route: 062

REACTIONS (1)
  - ACCIDENTAL OVERDOSE [None]
